FAERS Safety Report 8038592-6 (Version None)
Quarter: 2012Q1

REPORT INFORMATION
  Report Type: 
  Country: None (occurrence: None)
  Receive Date: 20120111
  Receipt Date: 20111202
  Transmission Date: 20120608
  Serious: No
  Sender: FDA-Public Use
  Company Number: US-AMGEN-USASP2011064253

PATIENT
  Sex: Male

DRUGS (2)
  1. ENBREL [Suspect]
     Indication: PSORIASIS
     Dosage: 50 MG, QWK
     Dates: start: 20101220, end: 20111119
  2. PENICILLIN [Concomitant]
     Dosage: UNK

REACTIONS (5)
  - TOOTHACHE [None]
  - PSORIASIS [None]
  - FEELING HOT [None]
  - TOOTH FRACTURE [None]
  - PRURITUS [None]
